FAERS Safety Report 8934348 (Version 1)
Quarter: 2012Q4

REPORT INFORMATION
  Report Type: 
  Country: CA (occurrence: CA)
  Receive Date: 20121129
  Receipt Date: 20121129
  Transmission Date: 20130627
  Serious: Yes (Other)
  Sender: FDA-Public Use
  Company Number: CA-JNJFOC-20121112821

PATIENT
  Age: 11 Year
  Sex: Male
  Weight: 36.29 kg

DRUGS (2)
  1. EXTRA STRENGTH TYLENOL COLD NIGHT TIME EZ TABS [Suspect]
     Indication: NASAL CONGESTION
     Route: 065
  2. EXTRA STRENGTH TYLENOL COLD NIGHT TIME EZ TABS [Suspect]
     Indication: COUGH
     Route: 065

REACTIONS (2)
  - Hallucination [Unknown]
  - Drug ineffective [Unknown]
